FAERS Safety Report 6431596-6 (Version None)
Quarter: 2009Q4

REPORT INFORMATION
  Report Type: 
  Country: None (occurrence: None)
  Receive Date: 20091106
  Receipt Date: 20020313
  Transmission Date: 20100525
  Serious: Yes (Death)
  Sender: FDA-Public Use
  Company Number: JP-GENENTECH-100411

PATIENT
  Sex: Female
  Weight: 66.9 kg

DRUGS (5)
  1. BLINDED [Suspect]
     Indication: BREAST CANCER METASTATIC
     Dosage: 4 MG/KG, SINGLE
     Route: 042
     Dates: start: 20010919, end: 20011004
  2. HERCEPTIN [Suspect]
     Indication: BREAST CANCER METASTATIC
     Dosage: 4 MG/KG, SINGLE
     Route: 042
     Dates: start: 20010919, end: 20011004
  3. BLINDED [Suspect]
     Route: 042
     Dates: start: 20010927, end: 20011004
  4. BLINDED (TRASTUZUMAB) [Suspect]
     Route: 042
     Dates: start: 20010927, end: 20011004
  5. DOCETAXEL [Concomitant]
     Indication: DRUG USE FOR UNKNOWN INDICATION
     Dosage: UNK
     Dates: start: 20001110, end: 20010413

REACTIONS (1)
  - SUBARACHNOID HAEMORRHAGE [None]
